FAERS Safety Report 19860795 (Version 1)
Quarter: 2021Q3

REPORT INFORMATION
  Report Type: Spontaneous
  Country: CN (occurrence: CN)
  Receive Date: 20210921
  Receipt Date: 20210921
  Transmission Date: 20211014
  Serious: Yes (Other)
  Sender: FDA-Public Use
  Company Number: CN-LUPIN PHARMACEUTICALS INC.-2021-18270

PATIENT
  Age: 3 Day
  Sex: Female
  Weight: 3.4 kg

DRUGS (6)
  1. OSELTAMIVIR [Suspect]
     Active Substance: OSELTAMIVIR
     Indication: SEVERE ACUTE RESPIRATORY SYNDROME
     Dosage: 75 MILLIGRAM, BID
     Route: 064
     Dates: start: 20200126
  2. METHYLPREDNISOLONE. [Suspect]
     Active Substance: METHYLPREDNISOLONE
     Indication: COVID-19 PNEUMONIA
     Dosage: 20 MILLIGRAM, QD
     Route: 064
     Dates: start: 20200129
  3. CALAMINE [Suspect]
     Active Substance: CALAMINE\FERRIC OXIDE RED\ZINC OXIDE
     Indication: RASH
     Dosage: UNK
     Route: 064
     Dates: start: 20200125
  4. CEFACLOR. [Suspect]
     Active Substance: CEFACLOR
     Indication: ANTIBIOTIC THERAPY
     Dosage: 375 MILLIGRAM, BID
     Route: 064
     Dates: start: 202001
  5. BECLOMETASONE [Suspect]
     Active Substance: BECLOMETHASONE DIPROPIONATE
     Indication: RASH
     Dosage: UNK
     Route: 064
     Dates: start: 20200123
  6. AZITHROMYCIN ANHYDROUS. [Suspect]
     Active Substance: AZITHROMYCIN ANHYDROUS
     Indication: COVID-19
     Dosage: 500 MILLIGRAM, QD
     Route: 064
     Dates: start: 20200126

REACTIONS (5)
  - Pyrexia [Unknown]
  - Abdominal distension [Unknown]
  - Lymphopenia [Unknown]
  - Foetal exposure during pregnancy [Unknown]
  - Pneumonia [Unknown]
